FAERS Safety Report 11639388 (Version 2)
Quarter: 2016Q1

REPORT INFORMATION
  Report Type: Spontaneous
  Country: JP (occurrence: JP)
  Receive Date: 20151019
  Receipt Date: 20160127
  Transmission Date: 20160525
  Serious: Yes (Other)
  Sender: FDA-Public Use
  Company Number: JP-ACCORD-034605

PATIENT
  Age: 71 Year
  Sex: Male

DRUGS (2)
  1. ERLOTINIB/ERLOTINIB HYDROCHLORIDE [Suspect]
     Active Substance: ERLOTINIB HYDROCHLORIDE
     Indication: PANCREATIC CARCINOMA
     Dosage: THREE COURSES OF GEMCITABINE AND ERLOTINIB COMBINATION THERAPY
  2. GEMCITABINE/GEMCITABINE HYDROCHLORIDE [Suspect]
     Active Substance: GEMCITABINE\GEMCITABINE HYDROCHLORIDE
     Indication: PANCREATIC CARCINOMA
     Dosage: THREE COURSES OF GEMCITABINE AND ERLOTINIB COMBINATION THERAPY

REACTIONS (2)
  - No therapeutic response [Unknown]
  - Carbohydrate antigen 19-9 increased [Recovered/Resolved]
